FAERS Safety Report 13574162 (Version 1)
Quarter: 2017Q2

REPORT INFORMATION
  Report Type: Report from Study
  Country: US (occurrence: US)
  Receive Date: 20170523
  Receipt Date: 20170523
  Transmission Date: 20170830
  Serious: Yes (Other)
  Sender: FDA-Public Use
  Company Number: US-JAZZ-2017-US-006340

PATIENT
  Sex: Female

DRUGS (3)
  1. XYREM [Suspect]
     Active Substance: SODIUM OXYBATE
     Indication: NARCOLEPSY
     Dosage: 2.25 G, BID
     Route: 048
     Dates: start: 200504, end: 200505
  2. XYREM [Suspect]
     Active Substance: SODIUM OXYBATE
     Indication: CATAPLEXY
     Dosage: DOSE ADJUSTMENT
     Route: 048
     Dates: start: 200505, end: 200507
  3. XYREM [Suspect]
     Active Substance: SODIUM OXYBATE
     Dosage: 4.5 G, BID
     Route: 048
     Dates: start: 200507, end: 200601

REACTIONS (8)
  - Upper respiratory tract infection [Not Recovered/Not Resolved]
  - Gallbladder disorder [Recovered/Resolved]
  - Sleep apnoea syndrome [Unknown]
  - Restless legs syndrome [Unknown]
  - Asthma [Not Recovered/Not Resolved]
  - Pancreatitis [Recovered/Resolved]
  - Fungal infection [Unknown]
  - Somnambulism [Unknown]
